FAERS Safety Report 8377615-1 (Version None)
Quarter: 2012Q2

REPORT INFORMATION
  Report Type: 
  Country: None (occurrence: None)
  Receive Date: 20120522
  Receipt Date: 20120516
  Transmission Date: 20120825
  Serious: Yes (Hospitalization)
  Sender: FDA-Public Use
  Company Number: FR-PFIZER INC-2012001697

PATIENT
  Age: 68 Year
  Sex: Male
  Weight: 56 kg

DRUGS (4)
  1. TRAMADOL HCL [Concomitant]
     Dosage: 200 MG, 1X/DAY
     Route: 048
     Dates: start: 20110923, end: 20111024
  2. ROCEPHIN [Suspect]
     Dosage: 1 G, 1X/DAY
     Route: 058
     Dates: start: 20110923, end: 20111006
  3. FLAGYL [Suspect]
     Dosage: 1500 MG A DAY
     Route: 048
     Dates: start: 20110923, end: 20111006
  4. VFEND [Suspect]
     Dosage: 400 MG, 1X/DAY
     Route: 048
     Dates: start: 20110923, end: 20111012

REACTIONS (3)
  - OEDEMA PERIPHERAL [None]
  - HEPATOTOXICITY [None]
  - NAUSEA [None]
